FAERS Safety Report 6148492-4 (Version None)
Quarter: 2009Q2

REPORT INFORMATION
  Report Type: 
  Country: None (occurrence: None)
  Receive Date: 20090408
  Receipt Date: 20090330
  Transmission Date: 20091009
  Serious: Yes (Hospitalization, Other)
  Sender: FDA-Public Use
  Company Number: PHHY2009CA08741

PATIENT
  Sex: Male

DRUGS (10)
  1. CLOZARIL [Suspect]
     Indication: SCHIZOPHRENIA
     Dosage: UPTO 50 MG
     Route: 048
     Dates: start: 20081113, end: 20081115
  2. CLOZARIL [Suspect]
     Indication: PSYCHOTIC DISORDER
  3. SEROQUEL [Suspect]
  4. RISPERDAL [Suspect]
  5. ZYPREXA [Suspect]
  6. OMEPRAZOLE [Concomitant]
  7. RIVOTRIL [Concomitant]
  8. TRAZODONE [Concomitant]
     Dosage: UNK
     Dates: start: 20081016
  9. REMERON [Concomitant]
     Dosage: UNK
     Dates: start: 20081103
  10. DOMPERIDONE [Concomitant]

REACTIONS (3)
  - BLOOD CREATINE PHOSPHOKINASE INCREASED [None]
  - DRUG INTOLERANCE [None]
  - NEUROLEPTIC MALIGNANT SYNDROME [None]
